FAERS Safety Report 20686686 (Version 1)
Quarter: 2022Q2

REPORT INFORMATION
  Report Type: Spontaneous
  Country: US (occurrence: US)
  Receive Date: 20220407
  Receipt Date: 20220407
  Transmission Date: 20220721
  Serious: No
  Sender: FDA-Public Use
  Company Number: US-SA-SAC20220405000730

PATIENT
  Sex: Female

DRUGS (16)
  1. KEVZARA [Suspect]
     Active Substance: SARILUMAB
     Indication: Rheumatoid arthritis
     Dosage: 150 MG, QOW
     Route: 058
  2. ATORVASTATIN [Concomitant]
     Active Substance: ATORVASTATIN
  3. CALTRATE [Concomitant]
     Active Substance: CALCIUM CARBONATE
     Dosage: CALTRATE 600 TAB 600-800M
  4. CELEBREX [Concomitant]
     Active Substance: CELECOXIB
  5. DORZOLAMIDE [Concomitant]
     Active Substance: DORZOLAMIDE
     Dosage: 2% SOL
  6. FLUTICASONE [Concomitant]
     Active Substance: FLUTICASONE
     Dosage: FLUTICASONE SUS 50MCG/AC
  7. GABAPENTIN [Concomitant]
     Active Substance: GABAPENTIN
  8. GLUCOSAMINE [Concomitant]
     Active Substance: GLUCOSAMINE
  9. LATANOPROST [Concomitant]
     Active Substance: LATANOPROST
     Dosage: LATANOPROST SOL 0.005%,
  10. LISINOPRIL [Concomitant]
     Active Substance: LISINOPRIL
  11. PREDNISONE [Concomitant]
     Active Substance: PREDNISONE
  12. QUETIAPINE [Concomitant]
     Active Substance: QUETIAPINE
  13. SYSTANE (HYPROMELLOSE 2910 (4000 MPA.S)) [Concomitant]
     Active Substance: HYPROMELLOSE 2910 (4000 MPA.S)
     Dosage: 0.4-0.3% SOLUTION
  14. VITAMINS NOS [Concomitant]
     Active Substance: VITAMINS
  15. FISH OIL [Concomitant]
     Active Substance: FISH OIL
     Dosage: OMEGA 3 CAP 1000MG
  16. PANTOPRAZOLE [Concomitant]
     Active Substance: PANTOPRAZOLE
     Dosage: SOLUTION

REACTIONS (6)
  - Gait inability [Not Recovered/Not Resolved]
  - Pain [Not Recovered/Not Resolved]
  - Alopecia [Not Recovered/Not Resolved]
  - Impaired quality of life [Not Recovered/Not Resolved]
  - Pruritus [Not Recovered/Not Resolved]
  - Depression [Not Recovered/Not Resolved]
